FAERS Safety Report 10560983 (Version 1)
Quarter: 2014Q4

REPORT INFORMATION
  Report Type: Spontaneous
  Country: IN (occurrence: IN)
  Receive Date: 20141103
  Receipt Date: 20141103
  Transmission Date: 20150529
  Serious: Yes (Other)
  Sender: FDA-Public Use
  Company Number: IN-WATSON-2014-23238

PATIENT
  Age: 24 Year
  Sex: Female

DRUGS (1)
  1. RISPERIDONE (UNKNOWN) [Suspect]
     Active Substance: RISPERIDONE
     Indication: SCHIZOPHRENIA, CATATONIC TYPE
     Dosage: UNK
     Route: 065

REACTIONS (1)
  - Extrapyramidal disorder [Unknown]
